FAERS Safety Report 9527064 (Version 3)
Quarter: 2013Q4

REPORT INFORMATION
  Report Type: Spontaneous
  Country: JP (occurrence: JP)
  Receive Date: 20130916
  Receipt Date: 20131001
  Transmission Date: 20140711
  Serious: Yes (Hospitalization)
  Sender: FDA-Public Use
  Company Number: JP-ROCHE-1252097

PATIENT
  Age: 73 Year
  Sex: Male
  Weight: 48 kg

DRUGS (19)
  1. ACTEMRA [Suspect]
     Indication: RHEUMATOID ARTHRITIS
     Dosage: DOSAGE IS UNCERTAIN.
     Route: 041
     Dates: start: 20100604, end: 20110610
  2. ACTEMRA [Suspect]
     Indication: RHEUMATOID ARTHRITIS
     Route: 041
     Dates: start: 20120810, end: 20130604
  3. PREDNISOLONE [Concomitant]
     Indication: RHEUMATOID ARTHRITIS
     Route: 065
     Dates: end: 20091227
  4. PREDNISOLONE [Concomitant]
     Indication: ORGANISING PNEUMONIA
     Route: 065
     Dates: start: 20091228
  5. PREDNISOLONE [Concomitant]
     Dosage: 30 MG/DAY
     Route: 065
     Dates: start: 20120719, end: 20130729
  6. RHEUMATREX [Concomitant]
     Indication: RHEUMATOID ARTHRITIS
     Route: 065
     Dates: start: 20100109, end: 20110521
  7. CLEANAL [Concomitant]
     Route: 048
     Dates: start: 20050413
  8. TAKEPRON [Concomitant]
     Indication: PROPHYLAXIS
     Route: 048
     Dates: start: 20040827
  9. MAGMITT [Concomitant]
     Route: 048
     Dates: start: 20111024
  10. BENET [Concomitant]
     Route: 048
     Dates: start: 20100102
  11. FOLIAMIN [Concomitant]
     Indication: PROPHYLAXIS
     Route: 048
     Dates: start: 20050713, end: 20110521
  12. LOXONIN [Concomitant]
     Indication: RHEUMATOID ARTHRITIS
     Route: 048
     Dates: start: 20121109
  13. ALOSENN [Concomitant]
     Indication: CONSTIPATION
     Route: 048
     Dates: start: 20110729
  14. CRESTOR [Concomitant]
     Indication: HYPERCHOLESTEROLAEMIA
     Route: 048
     Dates: start: 20120914
  15. CYTOTEC [Concomitant]
     Indication: PROPHYLAXIS
     Route: 048
     Dates: start: 20120713
  16. ROZEREM [Concomitant]
     Indication: INSOMNIA
     Route: 048
     Dates: start: 20130215
  17. DAIKENCHUTO [Concomitant]
     Indication: CONSTIPATION
     Route: 048
     Dates: start: 20110718
  18. CELECOX [Concomitant]
     Indication: RHEUMATOID ARTHRITIS
     Route: 048
     Dates: start: 20110621
  19. FUROSEMIDE [Concomitant]
     Indication: VENTRICULAR SEPTAL DEFECT
     Route: 048
     Dates: start: 20130604

REACTIONS (4)
  - Organising pneumonia [Not Recovered/Not Resolved]
  - Prostate cancer [Recovering/Resolving]
  - C-reactive protein increased [Not Recovered/Not Resolved]
  - Drug ineffective [Unknown]
